FAERS Safety Report 8470423-2 (Version None)
Quarter: 2012Q2

REPORT INFORMATION
  Report Type: 
  Country: None (occurrence: None)
  Receive Date: 20120627
  Receipt Date: 20120615
  Transmission Date: 20120825
  Serious: Yes (Disabling, Other)
  Sender: FDA-Public Use
  Company Number: US-SANOFI-AVENTIS-2012SA043334

PATIENT
  Age: 78 Year
  Sex: Female

DRUGS (3)
  1. LANTUS [Suspect]
     Dosage: DOSE:40 UNIT(S)
     Route: 058
     Dates: start: 20070101
  2. INSULIN [Suspect]
     Dosage: DOASGE: SEVERAL TIMES PER DAY
  3. SOLOSTAR [Suspect]
     Dates: start: 20070101

REACTIONS (2)
  - BLADDER CATHETERISATION [None]
  - CEREBROVASCULAR ACCIDENT [None]
